FAERS Safety Report 10041647 (Version 1)
Quarter: 2014Q1

REPORT INFORMATION
  Report Type: Spontaneous
  Country: IT (occurrence: None)
  Receive Date: 20140325
  Receipt Date: 20140325
  Transmission Date: 20141002
  Serious: Yes (Hospitalization)
  Sender: FDA-Public Use
  Company Number: 2014AP002145

PATIENT
  Age: 90 Year
  Sex: Female

DRUGS (2)
  1. QUETIAPINE [Suspect]
     Indication: COGNITIVE DISORDER
     Dosage: TAB
     Route: 048
  2. LORMETAZEPAM (LORMETAZEPAM) [Suspect]
     Indication: COGNITIVE DISORDER
     Route: 048
     Dates: start: 20130816, end: 20130916

REACTIONS (1)
  - Sopor [None]
